FAERS Safety Report 7125850-2 (Version None)
Quarter: 2010Q4

REPORT INFORMATION
  Report Type: 
  Country: None (occurrence: None)
  Receive Date: 20101112
  Receipt Date: 20101103
  Transmission Date: 20110411
  Serious: Yes (Hospitalization, Other)
  Sender: FDA-Public Use
  Company Number: 742635

PATIENT
  Age: 59 Year
  Sex: Male
  Weight: 66.4 kg

DRUGS (3)
  1. NITROPRESS INJECTION 50MG, FLIPTOP VIAL (SODIUM NITROPRUSSIDE) [Suspect]
     Indication: HYPERTENSIVE CRISIS
     Dates: start: 20101021
  2. SODIUM THIOSULFATE [Concomitant]
  3. CYANOCOBALAMIN [Concomitant]

REACTIONS (8)
  - ANURIA [None]
  - AORTIC DISSECTION [None]
  - BLOOD CYANIDE INCREASED [None]
  - CHROMATURIA [None]
  - CONTINUOUS HAEMODIAFILTRATION [None]
  - ENCEPHALOPATHY [None]
  - ERGOT POISONING [None]
  - RENAL FAILURE CHRONIC [None]
